FAERS Safety Report 8036471-1 (Version None)
Quarter: 2012Q1

REPORT INFORMATION
  Report Type: 
  Country: None (occurrence: None)
  Receive Date: 20120106
  Receipt Date: 20110323
  Transmission Date: 20120608
  Serious: Yes (Death, Hospitalization, Other)
  Sender: FDA-Public Use
  Company Number: IE-022334

PATIENT
  Age: 71 Year
  Sex: Male
  Weight: 78.1 kg

DRUGS (1)
  1. (CHLORAMBUCIL) [Suspect]
     Indication: CHRONIC LYMPHOCYTIC LEUKAEMIA
     Dosage: 10MGM2 AT DAYS 1-7 EVERY 28 DAYS
     Route: 048
     Dates: start: 20110303

REACTIONS (6)
  - FEBRILE NEUTROPENIA [None]
  - COUGH [None]
  - DISEASE PROGRESSION [None]
  - RESPIRATORY TRACT INFECTION [None]
  - CHRONIC LYMPHOCYTIC LEUKAEMIA [None]
  - PANCYTOPENIA [None]
